FAERS Safety Report 8861511 (Version 2)
Quarter: 2013Q2

REPORT INFORMATION
  Report Type: Spontaneous
  Country: US (occurrence: None)
  Receive Date: 20120426
  Receipt Date: 20120703
  Transmission Date: 20140414
  Serious: No
  Sender: FDA-Public Use
  Company Number: PHEH2012US002512

PATIENT
  Age: 39 Year
  Sex: Male

DRUGS (9)
  1. GILENYA [Suspect]
     Indication: RELAPSING-REMITTING MULTIPLE SCLEROSIS
     Route: 048
     Dates: start: 20111229, end: 20120123
  2. MIRALAX [Concomitant]
  3. WELLBUTRIN XL (BUPROPION HYDROCHLORIDE) [Concomitant]
  4. LEVOXYL (LEVOTHYROXINE SODIUM) [Concomitant]
  5. LIPITOR (ATORVASTATIN CALCIUM) [Concomitant]
  6. LANTUS (INSULIN GLARGINE) [Concomitant]
  7. INSULIN LISPRO (INSULIN LISPRO) [Concomitant]
  8. TESTIM (TESTOSTERONE) [Concomitant]
  9. VITAMIN D (ERGOCALCIFEROL) [Concomitant]

REACTIONS (3)
  - Rash [None]
  - Dyspepsia [None]
  - Aphthous stomatitis [None]
